FAERS Safety Report 13021672 (Version 2)
Quarter: 2016Q4

REPORT INFORMATION
  Report Type: Spontaneous
  Country: US (occurrence: US)
  Receive Date: 20161213
  Receipt Date: 20161222
  Transmission Date: 20170207
  Serious: Yes (Other)
  Sender: FDA-Public Use
  Company Number: US-AMGEN-USASP2016174366

PATIENT
  Age: 71 Year
  Sex: Male
  Weight: 99.79 kg

DRUGS (4)
  1. LYRICA [Interacting]
     Active Substance: PREGABALIN
     Indication: NEURALGIA
     Dosage: 50 MG, BID
     Route: 048
     Dates: start: 201611
  2. AMIODARONE HYDROCHLORIDE. [Suspect]
     Active Substance: AMIODARONE HYDROCHLORIDE
     Indication: ATRIAL FIBRILLATION
     Dosage: UNK
     Route: 065
  3. METOPROLOL TARTRATE. [Suspect]
     Active Substance: METOPROLOL TARTRATE
     Indication: ATRIAL FIBRILLATION
     Dosage: UNK
     Route: 065
  4. ENBREL [Suspect]
     Active Substance: ETANERCEPT
     Indication: PRODUCT USED FOR UNKNOWN INDICATION
     Dosage: UNK
     Route: 065

REACTIONS (8)
  - Feeling drunk [Recovered/Resolved]
  - Feeling abnormal [Recovered/Resolved]
  - Arrhythmia [Unknown]
  - Drug interaction [Unknown]
  - Sleep disorder due to a general medical condition [Unknown]
  - Neuralgia [Unknown]
  - Fatigue [Recovered/Resolved]
  - Hypoacusis [Unknown]
